FAERS Safety Report 9980768 (Version 4)
Quarter: 2014Q2

REPORT INFORMATION
  Report Type: Report from Study
  Country: US (occurrence: US)
  Receive Date: 20140307
  Receipt Date: 20140410
  Transmission Date: 20141212
  Serious: Yes (Hospitalization)
  Sender: FDA-Public Use
  Company Number: US-ROCHE-1220727

PATIENT
  Age: 1 Day
  Sex: Male
  Weight: 3.18 kg

DRUGS (3)
  1. OMALIZUMAB [Suspect]
     Indication: PRODUCT USED FOR UNKNOWN INDICATION
     Route: 064
     Dates: start: 20120821
  2. AMPICILLIN [Concomitant]
     Route: 042
     Dates: start: 20130424
  3. TYLENOL [Concomitant]
     Indication: PYREXIA

REACTIONS (10)
  - Premature baby [Unknown]
  - Asthma [Recovered/Resolved]
  - Clostridium difficile infection [Recovered/Resolved]
  - Ear infection [Unknown]
  - Bronchospasm [Unknown]
  - Upper respiratory tract infection [Unknown]
  - Penile torsion [Unknown]
  - Respiratory syncytial virus infection [Unknown]
  - Maternal exposure timing unspecified [Unknown]
  - Exposure during breast feeding [Unknown]
